FAERS Safety Report 13514119 (Version 1)
Quarter: 2017Q2

REPORT INFORMATION
  Report Type: Spontaneous
  Country: US (occurrence: US)
  Receive Date: 20170504
  Receipt Date: 20170504
  Transmission Date: 20170830
  Serious: No
  Sender: FDA-Public Use
  Company Number: US-ABBVIE-16P-163-1750515-00

PATIENT
  Age: 76 Year
  Sex: Male
  Weight: 90.8 kg

DRUGS (7)
  1. NEXIUM [Concomitant]
     Active Substance: ESOMEPRAZOLE MAGNESIUM
     Indication: BARRETT^S OESOPHAGUS
  2. CREON [Suspect]
     Active Substance: PANCRELIPASE AMYLASE\PANCRELIPASE LIPASE\PANCRELIPASE PROTEASE
     Indication: PANCREATIC FAILURE
     Dosage: 1 ONE CAPSULE WITH MEALS THREE TIMES A DAY.
     Route: 048
     Dates: start: 201601, end: 20161004
  3. AMLODIPINE [Concomitant]
     Active Substance: AMLODIPINE BESYLATE
     Indication: HYPERTENSION
  4. VICODIN [Concomitant]
     Active Substance: ACETAMINOPHEN\HYDROCODONE BITARTRATE
     Indication: BACK PAIN
  5. VICODIN [Concomitant]
     Active Substance: ACETAMINOPHEN\HYDROCODONE BITARTRATE
     Indication: NECK PAIN
  6. FLEXERIL [Concomitant]
     Active Substance: CYCLOBENZAPRINE HYDROCHLORIDE
     Indication: MUSCLE SPASMS
  7. CARVEDILOL. [Concomitant]
     Active Substance: CARVEDILOL
     Indication: HYPERTENSION

REACTIONS (5)
  - Asthenia [Recovered/Resolved]
  - Pallor [Recovered/Resolved]
  - Blood glucose decreased [Recovered/Resolved]
  - Fatigue [Recovered/Resolved]
  - Hyperhidrosis [Recovered/Resolved]

NARRATIVE: CASE EVENT DATE: 201603
